FAERS Safety Report 9468869 (Version 2)
Quarter: 2013Q3

REPORT INFORMATION
  Report Type: Spontaneous
  Country: US (occurrence: None)
  Receive Date: 20130812
  Receipt Date: 20130812
  Transmission Date: 20140515
  Serious: Yes (Other)
  Sender: FDA-Public Use
  Company Number: JPI-P-026244

PATIENT
  Age: 55 Year
  Sex: Female
  Weight: 90.72 kg

DRUGS (6)
  1. XYREM [Suspect]
     Indication: CATAPLEXY
     Dosage: 4.5 GM (2.25 GM,2 IN 1 D),ORAL
     Route: 048
     Dates: start: 20121030
  2. ADDERALL (AMPHETAMINE AND DEXTROAMPHETAMINE) [Concomitant]
  3. WELLBUTRIN (BUPROPION) [Concomitant]
  4. PROZAC (FLUOXETINE) [Concomitant]
  5. COZAAR (LOSARTAN) [Concomitant]
  6. ASPIRIN (ACETYLSALICYLIC ACID) [Concomitant]

REACTIONS (8)
  - Muscle spasms [None]
  - Swelling [None]
  - Cough [None]
  - Chest discomfort [None]
  - Hypersensitivity [None]
  - Swollen tongue [None]
  - Crying [None]
  - Muscle spasms [None]
